FAERS Safety Report 22192819 (Version 7)
Quarter: 2023Q4

REPORT INFORMATION
  Report Type: Report from Study
  Country: CO (occurrence: CO)
  Receive Date: 20230410
  Receipt Date: 20231218
  Transmission Date: 20240109
  Serious: Yes (Other)
  Sender: FDA-Public Use
  Company Number: CO-002147023-NVSC2023CO082105

PATIENT
  Age: 49 Year
  Sex: Female

DRUGS (9)
  1. COSENTYX [Suspect]
     Active Substance: SECUKINUMAB
     Indication: Ankylosing spondylitis
     Dosage: 150 MG, QW (EVERY 6 DAYS) WEEKS 0,1,2,3,4
     Route: 058
  2. COSENTYX [Suspect]
     Active Substance: SECUKINUMAB
     Dosage: 150 MG, QMO
     Route: 058
  3. COSENTYX [Suspect]
     Active Substance: SECUKINUMAB
     Dosage: UNK (4TH APPLICATION OF THE IMPREGNATION PHASE OF THE MEDICATION ON 12 APR)
     Route: 065
  4. COSENTYX [Suspect]
     Active Substance: SECUKINUMAB
     Dosage: UNK (5TH APPLICATION OF THE IMPREGNATION PHASE OF THE MEDICATION ON 19 APR)
     Route: 065
  5. COSENTYX [Suspect]
     Active Substance: SECUKINUMAB
     Dosage: UNK, QMO (CONTINUES MONTHLY)
     Route: 065
  6. COSENTYX [Suspect]
     Active Substance: SECUKINUMAB
     Dosage: 150 MG, QMO ( IN THE MONTH OF MARCH (NO EXACT DATE PROVIDED)
     Route: 065
  7. COSENTYX [Suspect]
     Active Substance: SECUKINUMAB
     Dosage: UNK, QMO (19 MAY)
     Route: 065
  8. COSENTYX [Suspect]
     Active Substance: SECUKINUMAB
     Dosage: 150 MG, QMO
     Route: 058
  9. COSENTYX [Suspect]
     Active Substance: SECUKINUMAB
     Dosage: 150 MG, QMO
     Route: 058
     Dates: start: 202302

REACTIONS (17)
  - Drug-induced liver injury [Unknown]
  - Cellulitis [Unknown]
  - Inflammation of wound [Unknown]
  - Ankylosing spondylitis [Unknown]
  - Gait inability [Unknown]
  - Spinal pain [Unknown]
  - Inflammation [Unknown]
  - Illness [Unknown]
  - Influenza [Unknown]
  - Oropharyngeal pain [Unknown]
  - Animal bite [Unknown]
  - Infected bite [Recovered/Resolved]
  - Pain [Unknown]
  - Hepatic enzyme abnormal [Unknown]
  - Fall [Unknown]
  - Eye injury [Unknown]
  - Product dose omission issue [Unknown]

NARRATIVE: CASE EVENT DATE: 20230701
